FAERS Safety Report 11872190 (Version 1)
Quarter: 2015Q4

REPORT INFORMATION
  Report Type: Report from Study
  Country: US (occurrence: US)
  Receive Date: 20151228
  Receipt Date: 20151228
  Transmission Date: 20160305
  Serious: Yes (Other)
  Sender: FDA-Public Use
  Company Number: US-CELGENE-163-21880-13121836

PATIENT
  Age: 87 Year
  Sex: Male
  Weight: 77 kg

DRUGS (17)
  1. REVLIMID [Suspect]
     Active Substance: LENALIDOMIDE
     Indication: MANTLE CELL LYMPHOMA
     Route: 048
     Dates: start: 20120809
  2. ALLOPURINOL. [Concomitant]
     Active Substance: ALLOPURINOL
     Indication: HYPERURICAEMIA
     Route: 048
     Dates: start: 20120809, end: 20130416
  3. VALACYCLOVIR HCL [Concomitant]
     Active Substance: VALACYCLOVIR HYDROCHLORIDE
     Indication: HERPES ZOSTER
     Route: 048
     Dates: start: 20120809, end: 201301
  4. COLACE [Concomitant]
     Active Substance: DOCUSATE SODIUM
     Indication: CONSTIPATION
     Dosage: 300 MILLIGRAM
     Route: 048
     Dates: start: 20121127
  5. SIMVASTATIN. [Concomitant]
     Active Substance: SIMVASTATIN
     Indication: HYPERCHOLESTEROLAEMIA
     Dosage: 100 MILLIGRAM
     Route: 048
  6. LUTEIN [Concomitant]
     Active Substance: LUTEIN
     Indication: MACULAR DEGENERATION
     Route: 048
  7. VITAMIN D [Concomitant]
     Active Substance: CHOLECALCIFEROL
     Indication: VITAMIN D DEFICIENCY
     Dosage: 50,000 UNITS
     Route: 048
     Dates: start: 20120816, end: 20121127
  8. VITAMIN A [Concomitant]
     Active Substance: VITAMIN A
     Indication: MACULAR DEGENERATION
     Dosage: 10,000 UNITS
     Route: 048
     Dates: start: 20120830, end: 20120906
  9. REVLIMID [Suspect]
     Active Substance: LENALIDOMIDE
     Route: 048
     Dates: start: 20131203, end: 20140304
  10. RITUXIMAB [Suspect]
     Active Substance: RITUXIMAB
     Indication: MANTLE CELL LYMPHOMA
     Route: 065
     Dates: end: 20140304
  11. IV HYDRATION [Concomitant]
     Indication: DEHYDRATION
     Route: 041
     Dates: start: 20120817, end: 20120817
  12. ASPIRIN. [Concomitant]
     Active Substance: ASPIRIN
     Indication: THROMBOSIS PROPHYLAXIS
     Route: 048
  13. IBUPROFEN. [Concomitant]
     Active Substance: IBUPROFEN
     Indication: TUMOUR FLARE
     Route: 048
     Dates: start: 20120809, end: 20120817
  14. VITAMIN D [Concomitant]
     Active Substance: CHOLECALCIFEROL
     Dosage: 2000 UNITS
     Route: 048
     Dates: start: 20121127
  15. IV HYDRATION [Concomitant]
     Indication: HYPOTENSION
  16. ATENOLOL. [Concomitant]
     Active Substance: ATENOLOL
     Indication: HYPERTROPHIC CARDIOMYOPATHY
     Dosage: 10 MILLIGRAM
     Route: 048
  17. VALACYCLOVIR HCL [Concomitant]
     Active Substance: VALACYCLOVIR HYDROCHLORIDE
     Route: 048
     Dates: start: 20130416

REACTIONS (2)
  - Neuroendocrine carcinoma of the skin [Not Recovered/Not Resolved]
  - Malignant melanoma in situ [Recovered/Resolved]

NARRATIVE: CASE EVENT DATE: 20131011
